FAERS Safety Report 9748118 (Version 2)
Quarter: 2013Q4

REPORT INFORMATION
  Report Type: Spontaneous
  Country: US (occurrence: None)
  Receive Date: 20131206
  Receipt Date: 20131212
  Transmission Date: 20140711
  Serious: Yes (Other)
  Sender: FDA-Public Use
  Company Number: 2013AP010154

PATIENT
  Age: 40 Year
  Sex: Female

DRUGS (2)
  1. TRAZODONE HYDROCHLORIDE [Suspect]
  2. GABAPENTIN [Suspect]
     Indication: PAIN

REACTIONS (4)
  - Drug-induced liver injury [None]
  - Chronic hepatitis [None]
  - Hepatic necrosis [None]
  - Biopsy liver abnormal [None]
